FAERS Safety Report 26080694 (Version 1)
Quarter: 2025Q4

REPORT INFORMATION
  Report Type: Spontaneous
  Country: US (occurrence: US)
  Receive Date: 20251124
  Receipt Date: 20251124
  Transmission Date: 20260117
  Serious: Yes (Other)
  Sender: DR REDDYS
  Company Number: US-DRL-USA-USA/2025/11/017632

PATIENT
  Age: 59 Year
  Sex: Male

DRUGS (3)
  1. DASATINIB [Suspect]
     Active Substance: DASATINIB
     Indication: Chronic myeloid leukaemia
  2. HYDROXYUREA [Concomitant]
     Active Substance: HYDROXYUREA
     Indication: Hyperleukocytosis
  3. RASBURICASE [Concomitant]
     Active Substance: RASBURICASE
     Indication: Hyperleukocytosis

REACTIONS (1)
  - Pancytopenia [Unknown]
